FAERS Safety Report 21140549 (Version 1)
Quarter: 2022Q3

REPORT INFORMATION
  Report Type: Spontaneous
  Country: NO (occurrence: NO)
  Receive Date: 20220728
  Receipt Date: 20220728
  Transmission Date: 20221027
  Serious: Yes (Hospitalization, Disabling)
  Sender: FDA-Public Use
  Company Number: None

PATIENT
  Age: 33 Year
  Sex: Female
  Weight: 65 kg

DRUGS (3)
  1. ESCITALOPRAM [Suspect]
     Active Substance: ESCITALOPRAM OXALATE
     Indication: Depression
     Dosage: TOOK 20 MG DAILY FOR SOME MONTHS, N06AB10 - ESCITALOPRAM
     Dates: start: 202108, end: 20220516
  2. DESOGESTREL [Concomitant]
     Active Substance: DESOGESTREL
     Dosage: G03AC09 - DESOGESTREL - ONGOING TREATMENT, STRENGTH: 75 MICROGRAM(S)
     Dates: start: 2007
  3. CRANBERRY [Concomitant]
     Active Substance: CRANBERRY
     Dosage: TO PREVENT URINARY TRACT INFECTION

REACTIONS (1)
  - Lower limb fracture [Unknown]
